FAERS Safety Report 5707243-5 (Version None)
Quarter: 2008Q2

REPORT INFORMATION
  Report Type: 
  Country: None (occurrence: None)
  Receive Date: 20080414
  Receipt Date: 20080414
  Transmission Date: 20081010
  Serious: Yes (Other)
  Sender: FDA-Public Use
  Company Number: None

PATIENT
  Sex: Male
  Weight: 70.9 kg

DRUGS (1)
  1. CLINDAMYCIN HCL [Suspect]
     Dates: start: 20080110, end: 20080111

REACTIONS (2)
  - PYREXIA [None]
  - RASH MORBILLIFORM [None]
